FAERS Safety Report 22320757 (Version 1)
Quarter: 2023Q2

REPORT INFORMATION
  Report Type: Spontaneous
  Country: US (occurrence: None)
  Receive Date: 20230512
  Receipt Date: 20230512
  Transmission Date: 20230722
  Serious: No
  Sender: FDA-Public Use
  Company Number: None

PATIENT
  Age: 75 Year
  Sex: Female

DRUGS (1)
  1. SKYRIZI [Suspect]
     Active Substance: RISANKIZUMAB-RZAA
     Indication: Psoriasis
     Dosage: INJECT 150MG (1 PEN)  SUBCUTANEOUSLY AT WEEK 0 AND WEEK 4 AS DIRECTED?
     Route: 058
     Dates: start: 202210

REACTIONS (3)
  - Gallbladder operation [None]
  - Sepsis [None]
  - Therapy interrupted [None]
